FAERS Safety Report 6566772-5 (Version None)
Quarter: 2010Q1

REPORT INFORMATION
  Report Type: 
  Country: None (occurrence: None)
  Receive Date: 20100202
  Receipt Date: 20091214
  Transmission Date: 20100710
  Serious: Yes (Hospitalization, Other)
  Sender: FDA-Public Use
  Company Number: DZ-PFIZER INC-2009310187

PATIENT
  Age: 43 Year
  Sex: Male

DRUGS (3)
  1. LYRICA [Suspect]
     Indication: PAIN
     Dosage: 450 MG/DAY
  2. VALIUM [Interacting]
  3. LAROXYL [Interacting]
     Dosage: 10 DROPS PER DAY

REACTIONS (2)
  - COMA [None]
  - DRUG INTERACTION [None]
